FAERS Safety Report 5977815-1 (Version None)
Quarter: 2008Q4

REPORT INFORMATION
  Report Type: 
  Country: None (occurrence: None)
  Receive Date: 20081203
  Receipt Date: 20081121
  Transmission Date: 20090506
  Serious: Yes (Hospitalization)
  Sender: FDA-Public Use
  Company Number: JP-BRISTOL-MYERS SQUIBB COMPANY-14412514

PATIENT
  Age: 66 Year
  Sex: Female
  Weight: 40 kg

DRUGS (5)
  1. ERBITUX [Suspect]
     Indication: LARGE INTESTINE CARCINOMA
     Dosage: STARTED ON 23OCT08
     Route: 041
     Dates: start: 20081023
  2. CAMPTOSAR [Suspect]
     Indication: LARGE INTESTINE CARCINOMA
     Route: 041
     Dates: start: 20081023
  3. KYTRIL [Concomitant]
     Indication: PREMEDICATION
     Route: 042
     Dates: start: 20081023
  4. DECADRON [Concomitant]
     Indication: PREMEDICATION
     Route: 042
  5. CHLOR-TRIMETON [Concomitant]
     Indication: PREMEDICATION
     Route: 042

REACTIONS (2)
  - ABDOMINAL PAIN UPPER [None]
  - DIARRHOEA [None]
